FAERS Safety Report 6026401-6 (Version None)
Quarter: 2009Q1

REPORT INFORMATION
  Report Type: 
  Country: None (occurrence: None)
  Receive Date: 20090102
  Receipt Date: 20081226
  Transmission Date: 20090719
  Serious: Yes (Hospitalization)
  Sender: FDA-Public Use
  Company Number: PHHY2008MX33392

PATIENT
  Sex: Male

DRUGS (4)
  1. DIOVAN HCT [Suspect]
     Indication: HYPERTENSION
     Dosage: 160/25 MG  0.5  TABLET/DAY
     Route: 048
     Dates: start: 20060101
  2. DIOVAN HCT [Suspect]
     Dosage: 160/25 MG 1 TAB/DAY
     Route: 048
     Dates: start: 20081210
  3. PROPRANOLOL [Concomitant]
     Dosage: 1 TAB/DAY
     Route: 048
  4. ACETYLSALICYLIC ACID SRT [Concomitant]
     Dosage: 0.5 TAB/DAY
     Route: 048

REACTIONS (1)
  - CATARACT OPERATION [None]
